FAERS Safety Report 11943634 (Version 1)
Quarter: 2016Q1

REPORT INFORMATION
  Report Type: Spontaneous
  Country: US (occurrence: US)
  Receive Date: 20160125
  Receipt Date: 20160125
  Transmission Date: 20160526
  Serious: Yes (Hospitalization)
  Sender: FDA-Public Use
  Company Number: US-UNITED THERAPEUTICS-UNT-2015-012765

PATIENT
  Age: 17 Year
  Sex: Female
  Weight: 80 kg

DRUGS (9)
  1. REMODULIN [Suspect]
     Active Substance: TREPROSTINIL
     Indication: PULMONARY ARTERIAL HYPERTENSION
     Dosage: 0.011 ?G/KG, CONTINUING
     Route: 041
     Dates: start: 20151005
  2. REVATIO [Concomitant]
     Active Substance: SILDENAFIL CITRATE
     Indication: PRODUCT USED FOR UNKNOWN INDICATION
  3. REMODULIN [Suspect]
     Active Substance: TREPROSTINIL
     Dosage: UNK
     Route: 041
  4. COUMADIN [Suspect]
     Active Substance: WARFARIN SODIUM
     Indication: PRODUCT USED FOR UNKNOWN INDICATION
     Route: 065
  5. CHLORHEXIDINE [Suspect]
     Active Substance: CHLORHEXIDINE
     Indication: PRODUCT USED FOR UNKNOWN INDICATION
     Route: 065
  6. REMODULIN [Suspect]
     Active Substance: TREPROSTINIL
     Dosage: 0.021 ?G/KG, CONTINUING
     Route: 041
  7. REMODULIN [Suspect]
     Active Substance: TREPROSTINIL
     Dosage: 0.0285 ?G/KG, CONTINUING
     Route: 041
  8. REMODULIN [Suspect]
     Active Substance: TREPROSTINIL
     Dosage: 0.036 ?G/KG, CONTINUING
     Route: 041
  9. TRACLEER [Suspect]
     Active Substance: BOSENTAN
     Indication: PRODUCT USED FOR UNKNOWN INDICATION
     Dosage: UNK
     Route: 065
     Dates: start: 20151105

REACTIONS (16)
  - Headache [Unknown]
  - Injection site rash [Unknown]
  - Injection site pustule [Recovered/Resolved]
  - Vomiting [Recovered/Resolved]
  - Device related infection [Unknown]
  - Diarrhoea [Not Recovered/Not Resolved]
  - Oedema peripheral [Unknown]
  - Injection site warmth [Recovered/Resolved]
  - Nausea [Recovered/Resolved]
  - Injection site pain [Unknown]
  - Injection site oedema [Unknown]
  - Injection site erythema [Unknown]
  - Dermatitis contact [Unknown]
  - Epistaxis [Unknown]
  - Injection site discharge [Unknown]
  - Injection site vesicles [Unknown]

NARRATIVE: CASE EVENT DATE: 2015
